FAERS Safety Report 4675728-9 (Version None)
Quarter: 2005Q2

REPORT INFORMATION
  Report Type: 
  Country: None (occurrence: None)
  Receive Date: 20050527
  Receipt Date: 20050302
  Transmission Date: 20051028
  Serious: No
  Sender: FDA-Public Use
  Company Number: US-BRISTOL-MYERS SQUIBB COMPANY-12883013

PATIENT
  Age: 78 Year
  Sex: Male
  Weight: 78 kg

DRUGS (5)
  1. ERBITUX [Suspect]
     Route: 042
     Dates: start: 20050302, end: 20050302
  2. BENADRYL [Concomitant]
     Indication: PREMEDICATION
     Route: 042
     Dates: start: 20050302, end: 20050302
  3. CISPLATIN [Concomitant]
     Indication: PREMEDICATION
     Route: 042
     Dates: start: 20050302, end: 20050302
  4. DECADRON [Concomitant]
     Indication: PREMEDICATION
     Route: 042
     Dates: start: 20050302, end: 20050302
  5. NORMAL SALINE [Concomitant]

REACTIONS (1)
  - EXTRAVASATION [None]
